FAERS Safety Report 4615877-4 (Version None)
Quarter: 2005Q1

REPORT INFORMATION
  Report Type: 
  Country: None (occurrence: None)
  Receive Date: 20050321
  Receipt Date: 20050310
  Transmission Date: 20050727
  Serious: Yes (Hospitalization)
  Sender: FDA-Public Use
  Company Number: GXKR2005ES00547

PATIENT
  Age: 44 Year
  Sex: 0
  Weight: 117 kg

DRUGS (1)
  1. METFORMIN (NGX) (METFORMIN) [Suspect]
     Indication: OBESITY
     Dosage: 1.700 MG

REACTIONS (2)
  - DIVERTICULAR HERNIA [None]
  - GASTROINTESTINAL HAEMORRHAGE [None]
